FAERS Safety Report 13486013 (Version 1)
Quarter: 2017Q2

REPORT INFORMATION
  Report Type: Spontaneous
  Country: IN (occurrence: IN)
  Receive Date: 20170426
  Receipt Date: 20170426
  Transmission Date: 20170830
  Serious: Yes (Other)
  Sender: FDA-Public Use
  Company Number: IN-HQ SPECIALTY-IN-2017INT000128

PATIENT
  Age: 10 Year
  Sex: Female

DRUGS (3)
  1. CISPLATIN. [Suspect]
     Active Substance: CISPLATIN
     Indication: OVARIAN GERM CELL TERATOMA
     Dosage: 20 MG/M2, D1-5, 4 CYCLES EVERY 21 DAYS
  2. ETOPOSIDE. [Suspect]
     Active Substance: ETOPOSIDE
     Indication: OVARIAN GERM CELL TERATOMA
     Dosage: 100 MG/M2, D1-5, 4 CYCLES EVERY 21 DAYS
  3. BLEOMYCIN [Suspect]
     Active Substance: BLEOMYCIN SULFATE
     Indication: OVARIAN GERM CELL TERATOMA
     Dosage: 30 IU, D1,8,AND 15, 4 CYCLES EVERY 21 DAYS

REACTIONS (1)
  - Ovarian germ cell teratoma [Recovering/Resolving]
